FAERS Safety Report 10241966 (Version 1)
Quarter: 2014Q1

REPORT INFORMATION
  Report Type: Spontaneous
  Country: US (occurrence: None)
  Receive Date: 20140306
  Receipt Date: 20140306
  Transmission Date: 20141002
  Serious: Yes (Other)
  Sender: FDA-Public Use
  Company Number: 163-21880-13124659

PATIENT
  Age: 72 Year
  Sex: Female

DRUGS (11)
  1. REVLIMID (LENALIDOMIDE) (25 MILLIGRAM, CAPSULES) [Suspect]
     Indication: PLASMA CELL MYELOMA
     Route: 048
     Dates: start: 201304, end: 2013
  2. LISINOPRIL (UNKNOWN) [Concomitant]
  3. PRISTIQ (DESVENLAFAXINSUCCINATE) (UNKNOWN) [Concomitant]
  4. BYSTOLIC (NEBIVOLOL HYDROCHLORIDE) (UNKNOWN) [Concomitant]
  5. NEXIUM (ESOMEPRAZOLE) (UNKNOWN) [Concomitant]
  6. LUMIGAN (BIMATOPROST) (UNKNOWN) [Concomitant]
  7. COSOPT (COSOPT) (UNKNOWN) [Concomitant]
  8. VITAMIN B12 (CYANOCOBALAMIN) (UNKNOWN) [Concomitant]
  9. HYDROCHLOROTHIAZIDE (HYDROCHLOROTHIAZIDE) (UNKNOWN) [Concomitant]
  10. VELCADE (BORTEZOMIB) (UNKNOWN) [Concomitant]
  11. PROCRIT (ERYTHROPOIETIN) (UNKNOWN) [Concomitant]

REACTIONS (2)
  - Paraesthesia [None]
  - Dyspnoea exertional [None]
